FAERS Safety Report 10996562 (Version 4)
Quarter: 2017Q2

REPORT INFORMATION
  Report Type: Spontaneous
  Country: US (occurrence: US)
  Receive Date: 20150408
  Receipt Date: 20170517
  Transmission Date: 20170829
  Serious: Yes (Hospitalization, Other)
  Sender: FDA-Public Use
  Company Number: US-BRISTOL-MYERS SQUIBB COMPANY-BMS-2014-007729

PATIENT
  Age: 44 Year

DRUGS (2)
  1. PAXIL [Concomitant]
     Active Substance: PAROXETINE HYDROCHLORIDE
     Indication: DEPRESSION
     Route: 065
  2. ABILIFY [Suspect]
     Active Substance: ARIPIPRAZOLE
     Indication: MAJOR DEPRESSION
     Dosage: UNK
     Route: 065
     Dates: start: 20101101, end: 20131111

REACTIONS (5)
  - Alcohol abuse [Unknown]
  - Obsessive-compulsive disorder [Unknown]
  - Hospitalisation [Unknown]
  - Gambling disorder [Recovered/Resolved]
  - Impulse-control disorder [Unknown]

NARRATIVE: CASE EVENT DATE: 20110414
